FAERS Safety Report 4662175-9 (Version None)
Quarter: 2005Q2

REPORT INFORMATION
  Report Type: 
  Country: None (occurrence: None)
  Receive Date: 20050516
  Receipt Date: 20050412
  Transmission Date: 20051028
  Serious: Yes (Death)
  Sender: FDA-Public Use
  Company Number: US-BRISTOL-MYERS SQUIBB COMPANY-12930996

PATIENT
  Age: 68 Year
  Sex: Male

DRUGS (1)
  1. GLUCOPHAGE XR [Suspect]

REACTIONS (1)
  - LUNG CANCER METASTATIC [None]
